FAERS Safety Report 24259560 (Version 1)
Quarter: 2024Q3

REPORT INFORMATION
  Report Type: Spontaneous
  Country: CN (occurrence: CN)
  Receive Date: 20240828
  Receipt Date: 20240828
  Transmission Date: 20241017
  Serious: Yes (Hospitalization)
  Sender: MERCK
  Company Number: CN-009507513-2408CHN008036

PATIENT
  Age: 77 Year
  Sex: Male
  Weight: 171 kg

DRUGS (2)
  1. CILASTATIN SODIUM\IMIPENEM [Suspect]
     Active Substance: CILASTATIN SODIUM\IMIPENEM
     Indication: Abdominal infection
     Dosage: 0.5 G, Q8H, IV DRIP
     Route: 041
     Dates: start: 20240726, end: 20240811
  2. SODIUM CHLORIDE [Concomitant]
     Active Substance: SODIUM CHLORIDE
     Indication: Medication dilution
     Dosage: 100 ML, Q8H, IV DRIP
     Route: 041
     Dates: start: 20240726, end: 20240811

REACTIONS (2)
  - Platelet count increased [Recovered/Resolved with Sequelae]
  - C-reactive protein increased [Recovered/Resolved]

NARRATIVE: CASE EVENT DATE: 20240801
